FAERS Safety Report 6936881-7 (Version None)
Quarter: 2010Q3

REPORT INFORMATION
  Report Type: 
  Country: None (occurrence: None)
  Receive Date: 20100823
  Receipt Date: 20100812
  Transmission Date: 20110219
  Serious: Yes (Other)
  Sender: FDA-Public Use
  Company Number: CA-JNJFOC-20100804820

PATIENT
  Sex: Male
  Weight: 101.61 kg

DRUGS (9)
  1. REMICADE [Suspect]
     Indication: PSORIATIC ARTHROPATHY
     Route: 042
  2. REMICADE [Suspect]
     Route: 042
  3. REMICADE [Suspect]
     Route: 042
  4. REMICADE [Suspect]
     Route: 042
  5. ACCUPRIL [Concomitant]
  6. NOVOHYDRAZIDE [Concomitant]
  7. DICLOFENAC [Concomitant]
  8. NAPROXEN [Concomitant]
     Dosage: 1 TABLET BID
  9. TYLENOL (CAPLET) [Concomitant]

REACTIONS (8)
  - CHILLS [None]
  - DIZZINESS [None]
  - DYSPNOEA [None]
  - FATIGUE [None]
  - HYPOAESTHESIA [None]
  - INFUSION RELATED REACTION [None]
  - MALAISE [None]
  - NAUSEA [None]
